FAERS Safety Report 16089152 (Version 2)
Quarter: 2019Q2

REPORT INFORMATION
  Report Type: Spontaneous
  Country: CA (occurrence: CA)
  Receive Date: 20190319
  Receipt Date: 20190409
  Transmission Date: 20190711
  Serious: Yes (Other)
  Sender: FDA-Public Use
  Company Number: CA-AMREGENT-20190483

PATIENT
  Age: 77 Year
  Sex: Female

DRUGS (7)
  1. REPAGLINIDE. [Concomitant]
     Active Substance: REPAGLINIDE
     Dosage: UNKNOWN
     Route: 065
  2. PERINDOPRIL [Concomitant]
     Active Substance: PERINDOPRIL
     Dosage: UNKNOWN
     Route: 065
  3. ROSUVASTATIN. [Concomitant]
     Active Substance: ROSUVASTATIN
     Dosage: UNKNOWN
     Route: 065
  4. LATANOPROST. [Concomitant]
     Active Substance: LATANOPROST
     Dosage: UNKNOWN
     Route: 065
  5. JANUMET [Concomitant]
     Active Substance: METFORMIN HYDROCHLORIDE\SITAGLIPTIN PHOSPHATE
     Dosage: UNKNOWN
     Route: 065
  6. CALCIUM CARBONATE-VITAMIN D3 [Concomitant]
     Dosage: UNKNOWN
     Route: 065
  7. VENOFER [Suspect]
     Active Substance: IRON SUCROSE
     Dosage: 400 MG, 20 ML IN 250 NS
     Route: 042
     Dates: start: 20181108, end: 20181108

REACTIONS (9)
  - Chills [Unknown]
  - Nausea [Unknown]
  - Hyperhidrosis [Unknown]
  - Vomiting [Unknown]
  - Abdominal discomfort [Unknown]
  - Blood pressure abnormal [Unknown]
  - Loss of consciousness [Recovered/Resolved]
  - Feeling hot [Unknown]
  - Syncope [Unknown]

NARRATIVE: CASE EVENT DATE: 20181108
